FAERS Safety Report 25680329 (Version 2)
Quarter: 2025Q3

REPORT INFORMATION
  Report Type: Spontaneous
  Country: CN (occurrence: CN)
  Receive Date: 20250814
  Receipt Date: 20250826
  Transmission Date: 20251020
  Serious: Yes (Life-Threatening, Hospitalization, Other)
  Sender: SANOFI AVENTIS
  Company Number: CN-MLMSERVICE-20250805-PI600275-00232-4

PATIENT
  Age: 25 Year
  Sex: Female

DRUGS (6)
  1. MYCOPHENOLATE MOFETIL [Suspect]
     Active Substance: MYCOPHENOLATE MOFETIL
     Indication: Immunosuppressant drug therapy
     Dosage: 750 MG, BID
     Dates: start: 2020, end: 2020
  2. PREDNISONE [Suspect]
     Active Substance: PREDNISONE
     Indication: Immunosuppressant drug therapy
     Dosage: 15 MG, QD
     Dates: start: 2020, end: 2020
  3. PREDNISONE [Suspect]
     Active Substance: PREDNISONE
     Dosage: 10 MG, QD
     Dates: start: 2020, end: 2020
  4. LEFLUNOMIDE [Suspect]
     Active Substance: LEFLUNOMIDE
     Indication: Immunosuppressant drug therapy
     Dosage: 20 MG, QD
     Dates: start: 2020, end: 2020
  5. TACROLIMUS [Suspect]
     Active Substance: TACROLIMUS
     Indication: Immunosuppressant drug therapy
     Dosage: 2 MG, BID
     Dates: start: 2020, end: 2020
  6. TACROLIMUS [Suspect]
     Active Substance: TACROLIMUS
     Dosage: 1.5 MG, Q12H
     Dates: start: 2020

REACTIONS (6)
  - BK virus infection [Recovered/Resolved]
  - JC virus infection [Recovering/Resolving]
  - Ureteritis [Recovering/Resolving]
  - Ureteric stenosis [Recovering/Resolving]
  - Hydronephrosis [Recovering/Resolving]
  - Ureteric dilatation [Recovering/Resolving]

NARRATIVE: CASE EVENT DATE: 20200101
